FAERS Safety Report 13352412 (Version 1)
Quarter: 2017Q1

REPORT INFORMATION
  Report Type: Spontaneous
  Country: US (occurrence: US)
  Receive Date: 20170320
  Receipt Date: 20170320
  Transmission Date: 20170429
  Serious: No
  Sender: FDA-Public Use
  Company Number: US-ALLERGAN-1667383US

PATIENT
  Age: 72 Year
  Sex: Female

DRUGS (2)
  1. OXYTROL FOR WOMEN [Suspect]
     Active Substance: OXYBUTYNIN
     Indication: HYPERTONIC BLADDER
     Dosage: 3.9 MG PATCH REPLACED EVERY 4 DAYS
     Route: 061
  2. ALOE VERA [Concomitant]
     Active Substance: ALOE VERA LEAF
     Indication: PRODUCT USED FOR UNKNOWN INDICATION

REACTIONS (2)
  - Application site pruritus [Unknown]
  - Application site vesicles [Unknown]
